FAERS Safety Report 18985809 (Version 1)
Quarter: 2021Q1

REPORT INFORMATION
  Report Type: Spontaneous
  Country: US (occurrence: US)
  Receive Date: 20210308
  Receipt Date: 20210308
  Transmission Date: 20210420
  Serious: No
  Sender: FDA-Public Use
  Company Number: None

PATIENT
  Age: 84 Year
  Sex: Male

DRUGS (1)
  1. ACTEMRA ACTPEN [Suspect]
     Active Substance: TOCILIZUMAB
     Dosage: ?          OTHER DOSE:NOT AVAILABLE;OTHER FREQUENCY:OTHER;?
     Route: 058
     Dates: start: 202009

REACTIONS (4)
  - Contusion [None]
  - Skin irritation [None]
  - Rash macular [None]
  - Sensitive skin [None]

NARRATIVE: CASE EVENT DATE: 20201001
